FAERS Safety Report 16496411 (Version 1)
Quarter: 2019Q2

REPORT INFORMATION
  Report Type: Spontaneous
  Country: None (occurrence: US)
  Receive Date: 20190628
  Receipt Date: 20190628
  Transmission Date: 20190711
  Serious: No
  Sender: FDA-Public Use
  Company Number: US-PRINSTON PHARMACEUTICAL INC.-2018PRN01381

PATIENT
  Age: 67 Year
  Sex: Female

DRUGS (1)
  1. BUPROPION HYDROCHLORIDE. [Suspect]
     Active Substance: BUPROPION HYDROCHLORIDE
     Route: 065

REACTIONS (6)
  - Headache [Unknown]
  - Aphasia [Unknown]
  - Irritability [Unknown]
  - Nausea [Unknown]
  - Feeling jittery [Unknown]
  - Insomnia [Unknown]
